FAERS Safety Report 10013408 (Version 1)
Quarter: 2014Q1

REPORT INFORMATION
  Report Type: Spontaneous
  Country: US (occurrence: US)
  Receive Date: 20140314
  Receipt Date: 20140314
  Transmission Date: 20141002
  Serious: Yes (Other)
  Sender: FDA-Public Use
  Company Number: US-PFIZER INC-2014074513

PATIENT
  Age: 73 Year
  Sex: Female
  Weight: 52.61 kg

DRUGS (1)
  1. ESTRING [Suspect]
     Indication: VULVOVAGINAL DRYNESS
     Dosage: ON AND OFF IN EVERY THREE MONTHS
     Route: 067
     Dates: end: 201402

REACTIONS (1)
  - Dementia [Unknown]
